FAERS Safety Report 7687063-5 (Version None)
Quarter: 2011Q3

REPORT INFORMATION
  Report Type: 
  Country: None (occurrence: None)
  Receive Date: 20110816
  Receipt Date: 20110815
  Transmission Date: 20111222
  Serious: Yes (Death)
  Sender: FDA-Public Use
  Company Number: NZ-PFIZER INC-2011187558

PATIENT

DRUGS (4)
  1. METFORMIN [Suspect]
  2. ATORVASTATIN CALCIUM [Suspect]
  3. LOSARTAN [Suspect]
  4. TENECTEPLASE [Suspect]

REACTIONS (1)
  - DEATH [None]
